FAERS Safety Report 25386260 (Version 1)
Quarter: 2025Q2

REPORT INFORMATION
  Report Type: Spontaneous
  Country: US (occurrence: US)
  Receive Date: 20250602
  Receipt Date: 20250602
  Transmission Date: 20250717
  Serious: No
  Sender: BIOGEN
  Company Number: US-BIOGEN-2025BI01300732

PATIENT
  Sex: Male

DRUGS (1)
  1. TYSABRI [Suspect]
     Active Substance: NATALIZUMAB
     Indication: Multiple sclerosis
     Route: 050
     Dates: start: 20191026, end: 20241126

REACTIONS (8)
  - Multiple sclerosis [Unknown]
  - Muscle atrophy [Unknown]
  - Mobility decreased [Unknown]
  - Balance disorder [Unknown]
  - Fall [Recovered/Resolved]
  - Stress [Unknown]
  - Depressed mood [Unknown]
  - Anxiety [Unknown]
